FAERS Safety Report 5441115-9 (Version None)
Quarter: 2007Q3

REPORT INFORMATION
  Report Type: 
  Country: None (occurrence: None)
  Receive Date: 20070831
  Receipt Date: 20070820
  Transmission Date: 20080115
  Serious: Yes (Other)
  Sender: FDA-Public Use
  Company Number: US-PFIZER INC-2007061807

PATIENT
  Sex: Female
  Weight: 59 kg

DRUGS (5)
  1. CHANTIX [Suspect]
     Indication: EX-SMOKER
  2. OMEGA 3-6-9 [Interacting]
  3. GLUCOSAMINE WITH MSM [Interacting]
  4. NEXIUM [Concomitant]
  5. ASPIRIN [Concomitant]
     Dosage: DAILY DOSE:81MG

REACTIONS (17)
  - ABDOMINAL DISTENSION [None]
  - ABNORMAL DREAMS [None]
  - ARTHROPOD STING [None]
  - CONSTIPATION [None]
  - COUGH [None]
  - DECREASED APPETITE [None]
  - DRUG INTERACTION [None]
  - ECHOCARDIOGRAM ABNORMAL [None]
  - ELECTROCARDIOGRAM ABNORMAL [None]
  - FATIGUE [None]
  - FOREIGN BODY SENSATION IN EYES [None]
  - HERPES SIMPLEX SEROLOGY POSITIVE [None]
  - HYPERSOMNIA [None]
  - NAUSEA [None]
  - ORAL INTAKE REDUCED [None]
  - RETCHING [None]
  - WEIGHT DECREASED [None]
